FAERS Safety Report 16898634 (Version 1)
Quarter: 2019Q4

REPORT INFORMATION
  Report Type: Spontaneous
  Country: US (occurrence: US)
  Receive Date: 20191008
  Receipt Date: 20191008
  Transmission Date: 20200122
  Serious: Yes (Other)
  Sender: FDA-Public Use
  Company Number: None

PATIENT

DRUGS (1)
  1. ENOXAPARIN SODIUM 40MG/0.4ML SOLUTION [Suspect]
     Active Substance: ENOXAPARIN SODIUM

REACTIONS (1)
  - Maternal exposure during pregnancy [None]
